FAERS Safety Report 16753241 (Version 1)
Quarter: 2019Q3

REPORT INFORMATION
  Report Type: Spontaneous
  Country: US (occurrence: US)
  Receive Date: 20190829
  Receipt Date: 20190829
  Transmission Date: 20191005
  Serious: Yes (Other)
  Sender: FDA-Public Use
  Company Number: US-ROCHE-2387559

PATIENT
  Sex: Female
  Weight: 70.37 kg

DRUGS (5)
  1. ALEVE [Concomitant]
     Active Substance: NAPROXEN SODIUM
  2. GABAPENTIN. [Concomitant]
     Active Substance: GABAPENTIN
  3. OCREVUS [Suspect]
     Active Substance: OCRELIZUMAB
     Indication: RELAPSING MULTIPLE SCLEROSIS
     Dosage: ONGOING: YES
     Route: 042
     Dates: start: 20171101
  4. ADVIL [IBUPROFEN] [Concomitant]
     Active Substance: IBUPROFEN
  5. IBUPROFEN. [Concomitant]
     Active Substance: IBUPROFEN
     Dosage: 2 A DAY ;ONGOING: UNKNOWN
     Route: 048

REACTIONS (6)
  - Menopause [Unknown]
  - Disability [Unknown]
  - Hallucination [Recovered/Resolved]
  - Sinusitis [Recovered/Resolved]
  - Ulcer [Unknown]
  - Pain [Unknown]
